FAERS Safety Report 13637225 (Version 2)
Quarter: 2017Q4

REPORT INFORMATION
  Report Type: Spontaneous
  Country: AR (occurrence: AR)
  Receive Date: 20170609
  Receipt Date: 20171221
  Transmission Date: 20180320
  Serious: Yes (Death, Other)
  Sender: FDA-Public Use
  Company Number: AR-BAYER-2017-103468

PATIENT
  Age: 72 Year
  Sex: Female

DRUGS (2)
  1. REGORAFENIB [Suspect]
     Active Substance: REGORAFENIB
     Indication: ADENOCARCINOMA OF COLON
     Dosage: UNK
     Dates: start: 201502, end: 201508
  2. VALSARTAN. [Concomitant]
     Active Substance: VALSARTAN

REACTIONS (9)
  - Colon cancer metastatic [Fatal]
  - General physical health deterioration [None]
  - Pulmonary necrosis [None]
  - Asthenia [None]
  - Tumour necrosis [None]
  - Rash [None]
  - Metastases to lung [None]
  - Metastasis [None]
  - Intestinal obstruction [None]

NARRATIVE: CASE EVENT DATE: 201505
